FAERS Safety Report 12272694 (Version 3)
Quarter: 2016Q2

REPORT INFORMATION
  Report Type: Report from Study
  Country: FR (occurrence: FR)
  Receive Date: 20160415
  Receipt Date: 20160603
  Transmission Date: 20160815
  Serious: Yes (Hospitalization)
  Sender: FDA-Public Use
  Company Number: FR-CELGENEUS-FRA-2016041100

PATIENT
  Age: 76 Year
  Sex: Female
  Weight: 55 kg

DRUGS (67)
  1. ASPIRIN. [Concomitant]
     Active Substance: ASPIRIN
     Route: 048
     Dates: start: 20140630
  2. DOLIPRANE [Concomitant]
     Active Substance: ACETAMINOPHEN
     Indication: BONE PAIN
     Route: 048
     Dates: start: 20151207
  3. OXYCONTIN [Concomitant]
     Active Substance: OXYCODONE HYDROCHLORIDE
     Indication: BONE PAIN
     Route: 048
     Dates: start: 20151206
  4. OMEPRAZOLE. [Concomitant]
     Active Substance: OMEPRAZOLE
     Route: 048
     Dates: start: 20140630
  5. OMEPRAZOLE. [Concomitant]
     Active Substance: OMEPRAZOLE
     Route: 048
     Dates: start: 20140630
  6. DEXAMETHASONE. [Suspect]
     Active Substance: DEXAMETHASONE
     Indication: PLASMA CELL MYELOMA
     Route: 048
     Dates: start: 20140526, end: 20150909
  7. ASPIRIN. [Concomitant]
     Active Substance: ASPIRIN
     Indication: PROPHYLAXIS
     Route: 048
     Dates: start: 20140527
  8. ZEILTREX [Concomitant]
     Route: 048
     Dates: start: 20140630
  9. ENOXAPARIN [Concomitant]
     Active Substance: ENOXAPARIN
     Route: 048
     Dates: start: 20140630
  10. ENOXAPARIN [Concomitant]
     Active Substance: ENOXAPARIN
     Route: 048
     Dates: start: 20140630
  11. METEOXANE [Concomitant]
     Active Substance: AMOBARBITAL\BELLADONNA LEAF\DIMETHICONE\ERGOTAMINE TARTRATE
     Route: 048
     Dates: start: 20140630
  12. ZOPHREN [Concomitant]
     Active Substance: ONDANSETRON
     Route: 048
     Dates: start: 20140630
  13. ORACILLINE [Concomitant]
     Active Substance: PENICILLIN V
     Indication: PROPHYLAXIS
     Route: 048
     Dates: start: 20140527, end: 20160426
  14. ORACILLINE [Concomitant]
     Active Substance: PENICILLIN V
     Route: 048
     Dates: start: 20140630
  15. ZEILTREX [Concomitant]
     Route: 048
     Dates: start: 20140630
  16. SPECIALFOLDINE [Concomitant]
     Route: 048
     Dates: start: 20140630
  17. SPECIALFOLDINE [Concomitant]
     Route: 048
     Dates: start: 20140630
  18. AMLOR [Concomitant]
     Active Substance: AMLODIPINE BESYLATE
     Route: 048
     Dates: start: 20140630
  19. IMOVANE [Concomitant]
     Active Substance: ZOPICLONE
     Route: 048
     Dates: start: 20140630
  20. DOLIPRANE [Concomitant]
     Active Substance: ACETAMINOPHEN
     Route: 048
     Dates: start: 20140630
  21. TRAMADOL. [Concomitant]
     Active Substance: TRAMADOL
     Route: 048
     Dates: start: 20140630
  22. TRAMADOL. [Concomitant]
     Active Substance: TRAMADOL
     Route: 048
     Dates: start: 20140630
  23. ENOXAPARIN [Concomitant]
     Active Substance: ENOXAPARIN
     Route: 048
     Dates: start: 20140630
  24. METEOXANE [Concomitant]
     Active Substance: AMOBARBITAL\BELLADONNA LEAF\DIMETHICONE\ERGOTAMINE TARTRATE
     Route: 048
     Dates: start: 20140630
  25. ZOPHREN [Concomitant]
     Active Substance: ONDANSETRON
     Route: 048
     Dates: start: 20140630
  26. ORACILLINE [Concomitant]
     Active Substance: PENICILLIN V
     Route: 048
     Dates: start: 20140630
  27. BACTRIM [Concomitant]
     Active Substance: SULFAMETHOXAZOLE\TRIMETHOPRIM
     Route: 048
     Dates: start: 20140630
  28. SKENAN [Concomitant]
     Active Substance: MORPHINE SULFATE
     Route: 048
     Dates: start: 20140630
  29. AMLOR [Concomitant]
     Active Substance: AMLODIPINE BESYLATE
     Indication: HYPERTENSION
     Route: 048
     Dates: start: 20150309
  30. AMLOR [Concomitant]
     Active Substance: AMLODIPINE BESYLATE
     Route: 048
     Dates: start: 20140630
  31. TRAMADOL. [Concomitant]
     Active Substance: TRAMADOL
     Route: 048
     Dates: start: 20140630
  32. OXYCONTIN [Concomitant]
     Active Substance: OXYCODONE HYDROCHLORIDE
     Route: 048
     Dates: start: 20140630
  33. BACTRIM [Concomitant]
     Active Substance: SULFAMETHOXAZOLE\TRIMETHOPRIM
     Indication: PROPHYLAXIS
     Route: 048
     Dates: start: 20140527, end: 20160426
  34. DAFALGAN [Concomitant]
     Active Substance: ACETAMINOPHEN
     Indication: PROPHYLAXIS
     Route: 048
     Dates: start: 20140623, end: 20160426
  35. DOLIPRANE [Concomitant]
     Active Substance: ACETAMINOPHEN
     Route: 048
     Dates: start: 20140630
  36. DOLIPRANE [Concomitant]
     Active Substance: ACETAMINOPHEN
     Route: 048
     Dates: start: 20140630
  37. OXYCONTIN [Concomitant]
     Active Substance: OXYCODONE HYDROCHLORIDE
     Route: 048
     Dates: start: 20140630
  38. OMEPRAZOLE. [Concomitant]
     Active Substance: OMEPRAZOLE
     Indication: PRODUCT USED FOR UNKNOWN INDICATION
     Route: 048
     Dates: start: 20140527
  39. ENOXAPARIN [Concomitant]
     Active Substance: ENOXAPARIN
     Indication: THROMBOSIS PROPHYLAXIS
     Route: 058
     Dates: start: 20160201
  40. METEOXANE [Concomitant]
     Active Substance: AMOBARBITAL\BELLADONNA LEAF\DIMETHICONE\ERGOTAMINE TARTRATE
     Indication: PRODUCT USED FOR UNKNOWN INDICATION
     Route: 048
     Dates: start: 20160224, end: 20160226
  41. METEOXANE [Concomitant]
     Active Substance: AMOBARBITAL\BELLADONNA LEAF\DIMETHICONE\ERGOTAMINE TARTRATE
     Route: 048
     Dates: start: 20140630
  42. ASPIRIN. [Concomitant]
     Active Substance: ASPIRIN
     Route: 048
     Dates: start: 20140630
  43. BACTRIM [Concomitant]
     Active Substance: SULFAMETHOXAZOLE\TRIMETHOPRIM
     Route: 048
     Dates: start: 20140630
  44. BACTRIM [Concomitant]
     Active Substance: SULFAMETHOXAZOLE\TRIMETHOPRIM
     Route: 048
     Dates: start: 20140630
  45. SPECIALFOLDINE [Concomitant]
     Indication: PROPHYLAXIS
     Route: 048
     Dates: start: 20140527, end: 20160426
  46. SPECIALFOLDINE [Concomitant]
     Route: 048
     Dates: start: 20140630
  47. SKENAN [Concomitant]
     Active Substance: MORPHINE SULFATE
     Indication: PRODUCT USED FOR UNKNOWN INDICATION
     Route: 048
     Dates: start: 20140610, end: 20160426
  48. SKENAN [Concomitant]
     Active Substance: MORPHINE SULFATE
     Route: 048
     Dates: start: 20140630
  49. DAFALGAN [Concomitant]
     Active Substance: ACETAMINOPHEN
     Route: 048
     Dates: start: 20140630
  50. AMLOR [Concomitant]
     Active Substance: AMLODIPINE BESYLATE
     Route: 048
     Dates: start: 20140630
  51. IMOVANE [Concomitant]
     Active Substance: ZOPICLONE
     Indication: INSOMNIA
     Route: 048
     Dates: start: 1995
  52. IMOVANE [Concomitant]
     Active Substance: ZOPICLONE
     Route: 048
     Dates: start: 20140630
  53. OXYCONTIN [Concomitant]
     Active Substance: OXYCODONE HYDROCHLORIDE
     Route: 048
     Dates: start: 20140630
  54. ZOPHREN [Concomitant]
     Active Substance: ONDANSETRON
     Indication: PRODUCT USED FOR UNKNOWN INDICATION
     Route: 048
     Dates: start: 20140630
  55. ZOPHREN [Concomitant]
     Active Substance: ONDANSETRON
     Route: 048
     Dates: start: 20140630
  56. MAGNE [Concomitant]
     Indication: PROPHYLAXIS
     Dosage: 48/5
     Route: 048
     Dates: start: 20140521, end: 20160426
  57. ORACILLINE [Concomitant]
     Active Substance: PENICILLIN V
     Route: 048
     Dates: start: 20140630
  58. ZEILTREX [Concomitant]
     Indication: PROPHYLAXIS
     Route: 048
     Dates: start: 20140527, end: 20160426
  59. ZEILTREX [Concomitant]
     Route: 048
     Dates: start: 20140630
  60. SKENAN [Concomitant]
     Active Substance: MORPHINE SULFATE
     Route: 048
     Dates: start: 20140630
  61. DAFALGAN [Concomitant]
     Active Substance: ACETAMINOPHEN
     Route: 048
     Dates: start: 20140630
  62. DAFALGAN [Concomitant]
     Active Substance: ACETAMINOPHEN
     Route: 048
     Dates: start: 20140630
  63. OMEPRAZOLE. [Concomitant]
     Active Substance: OMEPRAZOLE
     Route: 048
     Dates: start: 20140630
  64. REVLIMID [Suspect]
     Active Substance: LENALIDOMIDE
     Indication: PLASMA CELL MYELOMA
     Dosage: 5 MILLIGRAM
     Route: 048
     Dates: start: 20140526
  65. ASPIRIN. [Concomitant]
     Active Substance: ASPIRIN
     Route: 048
     Dates: start: 20140630
  66. IMOVANE [Concomitant]
     Active Substance: ZOPICLONE
     Route: 048
     Dates: start: 20140630
  67. TRAMADOL. [Concomitant]
     Active Substance: TRAMADOL
     Indication: BONE PAIN
     Route: 048
     Dates: start: 20150330

REACTIONS (1)
  - Bone lesion [Recovered/Resolved]

NARRATIVE: CASE EVENT DATE: 20160316
